FAERS Safety Report 11406876 (Version 2)
Quarter: 2015Q3

REPORT INFORMATION
  Report Type: Spontaneous
  Country: PE (occurrence: PE)
  Receive Date: 20150821
  Receipt Date: 20150904
  Transmission Date: 20151125
  Serious: No
  Sender: FDA-Public Use
  Company Number: PE-PFIZER INC-2015273976

PATIENT
  Age: 76 Year
  Sex: Female

DRUGS (3)
  1. XALATAN [Suspect]
     Active Substance: LATANOPROST
     Dosage: UNK
  2. CINAGERON /00111601/ [Concomitant]
     Dosage: UNK
     Dates: start: 201503
  3. NORFLEX [Concomitant]
     Active Substance: ORPHENADRINE CITRATE
     Dosage: UNK
     Dates: start: 201503

REACTIONS (1)
  - Labyrinthitis [Recovered/Resolved]

NARRATIVE: CASE EVENT DATE: 201503
